FAERS Safety Report 12191095 (Version 1)
Quarter: 2016Q1

REPORT INFORMATION
  Report Type: Report from Study
  Country: CO (occurrence: CO)
  Receive Date: 20160318
  Receipt Date: 20160318
  Transmission Date: 20160526
  Serious: Yes (Other)
  Sender: FDA-Public Use
  Company Number: CO-JNJFOC-20160200725

PATIENT
  Age: 52 Year
  Sex: Female
  Weight: 60 kg

DRUGS (5)
  1. PYRIDOXINE [Concomitant]
     Active Substance: PYRIDOXINE
     Route: 065
  2. ATROPINE. [Concomitant]
     Active Substance: ATROPINE
     Route: 065
  3. ISONIAZID. [Concomitant]
     Active Substance: ISONIAZID
     Route: 065
  4. REMICADE [Suspect]
     Active Substance: INFLIXIMAB
     Indication: CROHN^S DISEASE
     Route: 042
     Dates: start: 20151221
  5. SULFASALAZINE. [Concomitant]
     Active Substance: SULFASALAZINE
     Route: 065

REACTIONS (4)
  - Pyrexia [Not Recovered/Not Resolved]
  - Laryngitis [Not Recovered/Not Resolved]
  - Dyspnoea [Not Recovered/Not Resolved]
  - Sputum discoloured [Not Recovered/Not Resolved]

NARRATIVE: CASE EVENT DATE: 201601
